FAERS Safety Report 8871496 (Version 1)
Quarter: 2012Q4

REPORT INFORMATION
  Report Type: 
  Country: US (occurrence: US)
  Receive Date: 20121026
  Receipt Date: 20121026
  Transmission Date: 20130627
  Serious: No
  Sender: FDA-Public Use
  Company Number: US-AMGEN-USASP2012048401

PATIENT
  Age: 60 Year
  Sex: Female

DRUGS (4)
  1. ENBREL [Suspect]
     Indication: RHEUMATOID ARTHRITIS
     Dosage: 50 mg, qwk
     Dates: start: 20120424
  2. SULFASALAZINE [Concomitant]
     Dosage: 1 mg, UNK
     Dates: start: 201110
  3. PLAQUENIL                          /00072602/ [Concomitant]
     Dosage: 1 mg, UNK
     Dates: start: 2009
  4. ARAVA [Concomitant]
     Dosage: 1 mg, UNK
     Dates: start: 201204

REACTIONS (3)
  - Injection site erythema [Not Recovered/Not Resolved]
  - Injection site warmth [Not Recovered/Not Resolved]
  - Injection site pruritus [Not Recovered/Not Resolved]
